FAERS Safety Report 25594998 (Version 3)
Quarter: 2025Q3

REPORT INFORMATION
  Report Type: Report from Study
  Country: US (occurrence: US)
  Receive Date: 20250723
  Receipt Date: 20250801
  Transmission Date: 20251020
  Serious: Yes (Hospitalization, Other)
  Sender: TAKEDA
  Company Number: US-TAKEDA-2025TUS059868

PATIENT
  Sex: Female

DRUGS (19)
  1. IXAZOMIB [Suspect]
     Active Substance: IXAZOMIB
     Indication: Plasma cell myeloma
     Dosage: 4 MILLIGRAM, 1/WEEK
     Dates: start: 20250623
  2. IXAZOMIB [Suspect]
     Active Substance: IXAZOMIB
     Dosage: 4 MILLIGRAM, 1/WEEK
  3. DEXAMETHASONE [Suspect]
     Active Substance: DEXAMETHASONE
     Indication: Plasma cell myeloma
  4. ACETAMINOPHEN [Suspect]
     Active Substance: ACETAMINOPHEN
     Indication: Pain
  5. LENALIDOMIDE [Suspect]
     Active Substance: LENALIDOMIDE
     Indication: Plasma cell myeloma
  6. OXYCODONE [Suspect]
     Active Substance: OXYCODONE
     Indication: Pain
  7. GABAPENTIN [Concomitant]
     Active Substance: GABAPENTIN
  8. OXYCONTIN [Concomitant]
     Active Substance: OXYCODONE HYDROCHLORIDE
  9. OXYBUTYNIN [Concomitant]
     Active Substance: OXYBUTYNIN
  10. PAROXETINE [Concomitant]
     Active Substance: PAROXETINE
  11. HYDROCORTISONE [Concomitant]
     Active Substance: HYDROCORTISONE
  12. DILTIAZEM [Concomitant]
     Active Substance: DILTIAZEM
  13. POTASSIUM CHLORIDE [Concomitant]
     Active Substance: POTASSIUM CHLORIDE
  14. ONDANSETRON [Concomitant]
     Active Substance: ONDANSETRON
  15. TYLENOL [Concomitant]
     Active Substance: ACETAMINOPHEN
  16. VITAMIN B1 [Concomitant]
     Active Substance: THIAMINE HYDROCHLORIDE
  17. ASPIRIN [Concomitant]
     Active Substance: ASPIRIN
  18. ACYCLOVIR [Concomitant]
     Active Substance: ACYCLOVIR
  19. ZOFRAN [Concomitant]
     Active Substance: ONDANSETRON HYDROCHLORIDE

REACTIONS (9)
  - Abdominal infection [Recovering/Resolving]
  - Abdominal discomfort [Unknown]
  - Nausea [Unknown]
  - Constipation [Recovering/Resolving]
  - Hypoacusis [Not Recovered/Not Resolved]
  - Mass [Not Recovered/Not Resolved]
  - Infection [Recovered/Resolved]
  - Agitation [Recovering/Resolving]
  - Feeling jittery [Recovering/Resolving]
